FAERS Safety Report 11977597 (Version 2)
Quarter: 2016Q1

REPORT INFORMATION
  Report Type: Spontaneous
  Country: BR (occurrence: BR)
  Receive Date: 20160129
  Receipt Date: 20160210
  Transmission Date: 20160526
  Serious: Yes (Other)
  Sender: FDA-Public Use
  Company Number: BR-PFIZER INC-2016045615

PATIENT
  Age: 75 Year
  Sex: Female
  Weight: 62 kg

DRUGS (2)
  1. XALATAN [Suspect]
     Active Substance: LATANOPROST
     Indication: GLAUCOMA
     Dosage: 1 DROP IN BOTH EYES IN THE EVENING (UNSPECIFIED FREQUENCY)
     Route: 047
     Dates: start: 201311
  2. HYLO-COMOD [Concomitant]
     Indication: EYE IRRITATION
     Dosage: 1 DROP BOTH EYES
     Dates: start: 201401

REACTIONS (2)
  - Astigmatism [Recovered/Resolved]
  - Cataract [Recovered/Resolved]

NARRATIVE: CASE EVENT DATE: 201312
